FAERS Safety Report 7622737-3 (Version None)
Quarter: 2011Q3

REPORT INFORMATION
  Report Type: 
  Country: None (occurrence: None)
  Receive Date: 20110712
  Receipt Date: 20110622
  Transmission Date: 20111222
  Serious: Yes (Disabling, Other)
  Sender: FDA-Public Use
  Company Number: 2011MA007964

PATIENT
  Age: 48 Year
  Sex: Female
  Weight: 97.0698 kg

DRUGS (7)
  1. UNSPECIFIED LOCAL ANESTHETIC [Suspect]
     Indication: ENDODONTIC PROCEDURE
     Dates: start: 20110503
  2. VITAMIN D [Concomitant]
  3. TIZANIDINE HCL [Suspect]
     Indication: MYALGIA
  4. CARISOPRODOL [Concomitant]
  5. OMEPRAZOLE [Concomitant]
  6. PREGABALIN [Suspect]
     Indication: FIBROMYALGIA
     Dosage: 150 MG; BID; PO
     Route: 048
     Dates: start: 20090101
  7. GLUCOSAMINE [Concomitant]

REACTIONS (25)
  - FEELING ABNORMAL [None]
  - DISSOCIATIVE DISORDER [None]
  - SENSORY DISTURBANCE [None]
  - ARTHRALGIA [None]
  - PAIN [None]
  - DIZZINESS [None]
  - CONDITION AGGRAVATED [None]
  - FEAR [None]
  - ANXIETY [None]
  - CHRONIC FATIGUE SYNDROME [None]
  - WEIGHT INCREASED [None]
  - ENDODONTIC PROCEDURE [None]
  - ADRENAL INSUFFICIENCY [None]
  - NERVOUSNESS [None]
  - COMPULSIVE LIP BITING [None]
  - BLOOD TRIGLYCERIDES INCREASED [None]
  - MALAISE [None]
  - NAUSEA [None]
  - GASTROOESOPHAGEAL REFLUX DISEASE [None]
  - LABORATORY TEST ABNORMAL [None]
  - DEHYDROEPIANDROSTERONE DECREASED [None]
  - EUPHORIC MOOD [None]
  - INSOMNIA [None]
  - FEELING DRUNK [None]
  - IRRITABLE BOWEL SYNDROME [None]
